FAERS Safety Report 25687578 (Version 2)
Quarter: 2025Q3

REPORT INFORMATION
  Report Type: Spontaneous
  Country: US (occurrence: US)
  Receive Date: 20250817
  Receipt Date: 20250820
  Transmission Date: 20251020
  Serious: Yes (Other)
  Sender: SANOFI AVENTIS
  Company Number: US-SANOFI-02619118

PATIENT
  Age: 78 Year
  Sex: Female

DRUGS (1)
  1. TOUJEO [Suspect]
     Active Substance: INSULIN GLARGINE
     Indication: Type 2 diabetes mellitus
     Dosage: 8 IU, QD
     Route: 065
     Dates: start: 20250721

REACTIONS (4)
  - Diabetes mellitus inadequate control [Unknown]
  - Device issue [Unknown]
  - Wrong technique in device usage process [Unknown]
  - Product dispensing error [Unknown]

NARRATIVE: CASE EVENT DATE: 20250101
